FAERS Safety Report 9963566 (Version 1)
Quarter: 2014Q1

REPORT INFORMATION
  Report Type: Report from Study
  Country: US (occurrence: US)
  Receive Date: 20140305
  Receipt Date: 20140305
  Transmission Date: 20141002
  Serious: No
  Sender: FDA-Public Use
  Company Number: US-ABBVIE-13P-163-1117253-00

PATIENT
  Sex: Female

DRUGS (9)
  1. HUMIRA [Suspect]
     Indication: PSORIASIS
     Dates: start: 20130313, end: 20130424
  2. HUMIRA [Suspect]
     Dates: start: 201305
  3. NAPROXEN [Concomitant]
     Indication: ARTHRALGIA
  4. ABILIFY [Concomitant]
     Indication: DEPRESSION
     Dosage: 2 MG DAILY
  5. ABILIFY [Concomitant]
     Indication: ANXIETY
  6. CITALOPRAM [Concomitant]
     Indication: DEPRESSION
     Dosage: 40 MG DAILY
  7. CITALOPRAM [Concomitant]
     Indication: ANXIETY
  8. HYDROXYZINE HCL [Concomitant]
     Indication: PRURITUS
     Dosage: 10 MG EVERY 4-6 HOURS AS REQUIRED
  9. PANTOPRAZOLE [Concomitant]
     Indication: GASTRIC DISORDER
     Dosage: 40 MG DAILY

REACTIONS (7)
  - Blood pressure decreased [Not Recovered/Not Resolved]
  - Loss of consciousness [Not Recovered/Not Resolved]
  - Skin fissures [Not Recovered/Not Resolved]
  - Pain of skin [Not Recovered/Not Resolved]
  - Dry skin [Not Recovered/Not Resolved]
  - Skin exfoliation [Not Recovered/Not Resolved]
  - Hypertension [Not Recovered/Not Resolved]
